FAERS Safety Report 12435630 (Version 1)
Quarter: 2016Q2

REPORT INFORMATION
  Report Type: Spontaneous
  Country: US (occurrence: US)
  Receive Date: 20160603
  Receipt Date: 20160603
  Transmission Date: 20160815
  Serious: Yes (Hospitalization)
  Sender: FDA-Public Use
  Company Number: US-ROCHE-1627801

PATIENT
  Sex: Male

DRUGS (1)
  1. XELODA [Suspect]
     Active Substance: CAPECITABINE
     Indication: OESOPHAGEAL CARCINOMA
     Dosage: TAKES 3500MG EACH DAY,14 DAYS ON/7 OFF
     Route: 065

REACTIONS (5)
  - Dihydropyrimidine dehydrogenase deficiency [Unknown]
  - Neutrophil count decreased [Unknown]
  - Off label use [Unknown]
  - Stevens-Johnson syndrome [Unknown]
  - Drug administration error [Unknown]
